FAERS Safety Report 25082335 (Version 10)
Quarter: 2025Q3

REPORT INFORMATION
  Report Type: Report from Study
  Country: US (occurrence: US)
  Receive Date: 20250317
  Receipt Date: 20250827
  Transmission Date: 20251021
  Serious: Yes (Hospitalization, Other)
  Sender: SUNOVION
  Company Number: US-SMPA-2025SPA002154AA

PATIENT
  Age: 83 Year
  Sex: Male

DRUGS (30)
  1. ORGOVYX [Suspect]
     Active Substance: RELUGOLIX
     Indication: Prostate cancer
     Dosage: 360 MG, SINGLE
     Route: 048
     Dates: start: 20250110, end: 20250110
  2. ORGOVYX [Suspect]
     Active Substance: RELUGOLIX
     Dosage: 120 MG, QD
     Route: 048
     Dates: start: 20250111
  3. AZITHROMYCIN [Suspect]
     Active Substance: AZITHROMYCIN
     Indication: Cough
  4. AZITHROMYCIN [Suspect]
     Active Substance: AZITHROMYCIN
     Indication: Dyspnoea
  5. PREDNISONE [Suspect]
     Active Substance: PREDNISONE
     Indication: Dyspnoea
  6. PREDNISONE [Suspect]
     Active Substance: PREDNISONE
     Indication: Cough
  7. NUBEQA [Concomitant]
     Active Substance: DAROLUTAMIDE
     Indication: Prostate cancer
     Dosage: 600 MG, BID
     Dates: start: 20250319
  8. GABAPENTIN [Concomitant]
     Active Substance: GABAPENTIN
  9. GUAIFENESIN [Concomitant]
     Active Substance: GUAIFENESIN
  10. LOSARTAN POTASSIUM [Concomitant]
     Active Substance: LOSARTAN POTASSIUM
  11. MAGNESIUM [Concomitant]
     Active Substance: MAGNESIUM
  12. MEMANTINE [Concomitant]
     Active Substance: MEMANTINE
  13. MONTELUKAST SODIUM [Concomitant]
     Active Substance: MONTELUKAST SODIUM
  14. VITAMINS [Concomitant]
     Active Substance: VITAMINS
  15. OZEMPIC [Concomitant]
     Active Substance: SEMAGLUTIDE
  16. Super omega 3 [Concomitant]
  17. TIOTROPIUM BROMIDE MONOHYDRATE [Concomitant]
     Active Substance: TIOTROPIUM BROMIDE MONOHYDRATE
  18. VITAMIN D3 [Concomitant]
     Active Substance: CHOLECALCIFEROL
  19. WIXELA INHUB [Concomitant]
     Active Substance: FLUTICASONE PROPIONATE\SALMETEROL XINAFOATE
  20. ALBUTEROL SULFATE [Concomitant]
     Active Substance: ALBUTEROL SULFATE
  21. ALLOPURINOL [Concomitant]
     Active Substance: ALLOPURINOL
  22. ATORVASTATIN [Concomitant]
     Active Substance: ATORVASTATIN
  23. CARVEDILOL [Concomitant]
     Active Substance: CARVEDILOL
  24. CETIRIZINE [Concomitant]
     Active Substance: CETIRIZINE HYDROCHLORIDE
  25. ELIQUIS [Concomitant]
     Active Substance: APIXABAN
  26. METFORMIN [Concomitant]
     Active Substance: METFORMIN HYDROCHLORIDE
  27. DOXYCYCLINE [Concomitant]
     Active Substance: DOXYCYCLINE
  28. CEFDINIR [Concomitant]
     Active Substance: CEFDINIR
  29. ASPIRIN [Concomitant]
     Active Substance: ASPIRIN
  30. LASIX [Concomitant]
     Active Substance: FUROSEMIDE

REACTIONS (17)
  - Pneumonia bacterial [Recovering/Resolving]
  - SARS-CoV-2 test positive [Unknown]
  - Cough [Not Recovered/Not Resolved]
  - Blood pressure decreased [Unknown]
  - Heart rate increased [Recovering/Resolving]
  - Confusional state [Recovering/Resolving]
  - Pyrexia [Recovering/Resolving]
  - White blood cell count increased [Recovering/Resolving]
  - Respiratory tract infection [Recovering/Resolving]
  - Dyspnoea exertional [Unknown]
  - Cold sweat [Unknown]
  - Asthenia [Recovering/Resolving]
  - Myalgia [Unknown]
  - Fatigue [Recovering/Resolving]
  - Hot flush [Unknown]
  - Anaemia [Unknown]
  - Product dose omission issue [Recovered/Resolved]

NARRATIVE: CASE EVENT DATE: 20250207
